FAERS Safety Report 5141345-X (Version None)
Quarter: 2006Q4

REPORT INFORMATION
  Report Type: 
  Country: None (occurrence: None)
  Receive Date: 20061101
  Receipt Date: 20061020
  Transmission Date: 20070319
  Serious: Yes (Hospitalization)
  Sender: FDA-Public Use
  Company Number: FR-ROCHE-468309

PATIENT
  Age: 62 Year
  Sex: Female

DRUGS (11)
  1. ROCEPHIN [Suspect]
     Dosage: FORM REPORTED AS INJECTABLE SOLUTION.
     Route: 042
     Dates: start: 20060910
  2. ROCEPHIN [Suspect]
     Dosage: DURING CHEMOTHERAPY FROM 24 AUGUST 2006 TO 28 AUGUST 200 FOR SEPTICAEMIA TO ESCHERICHIA COLI.
     Route: 042
     Dates: start: 20060824, end: 20060828
  3. DEROXAT [Suspect]
     Indication: DRUG USE FOR UNKNOWN INDICATION
     Route: 048
     Dates: start: 20060803
  4. COUMADIN [Suspect]
     Indication: PORTAL VEIN THROMBOSIS
     Dosage: INCREASE OF DOSE.
     Route: 048
     Dates: start: 20060901, end: 20060927
  5. COUMADIN [Suspect]
     Dosage: STOPPED DURING HOSPITALISATION BECAUSE OF INR AT 6 WITHOUT CLINICAL SYMPTOMS.
     Route: 048
     Dates: start: 20060615, end: 20060928
  6. COUMADIN [Suspect]
     Dosage: REINTRODUCED AT DISCHARGE ON 29 AUGUST 2006.
     Route: 048
     Dates: start: 20060829, end: 20060830
  7. ORACILLINE [Suspect]
     Indication: SPLENECTOMY
     Dosage: REPORTED STRENGTH: 1000000 IU
     Route: 048
     Dates: start: 20060517
  8. OFLOCET [Suspect]
     Dosage: RE-INTRODUCTION.
     Route: 048
     Dates: start: 20060910, end: 20060926
  9. OFLOCET [Suspect]
     Dosage: STARTED ON DISCHARGE ON 29 AUGUST 2006.
     Route: 048
     Dates: start: 20060829, end: 20060915
  10. OFLOCET [Suspect]
     Route: 048
     Dates: start: 20060824, end: 20060828
  11. HARPAGOPHYTUM [Concomitant]

REACTIONS (3)
  - GASTROINTESTINAL HAEMORRHAGE [None]
  - INTERNATIONAL NORMALISED RATIO INCREASED [None]
  - OVERDOSE [None]
